FAERS Safety Report 7348256-X (Version None)
Quarter: 2011Q1

REPORT INFORMATION
  Report Type: 
  Country: None (occurrence: None)
  Receive Date: 20110222
  Receipt Date: 20100204
  Transmission Date: 20110831
  Serious: Yes (Other)
  Sender: FDA-Public Use
  Company Number: 2010022026

PATIENT
  Sex: Female
  Weight: 102 kg

DRUGS (9)
  1. VIT D (ERGOCALCIFEROL) [Concomitant]
  2. ASTEPRO (1:1 MIX WITH NASOCORT) (AZELASTINE) [Concomitant]
  3. ELESTAT (EPINASTINE HYDROCHLORIDE) [Concomitant]
  4. VIVAGLOBIN [Suspect]
     Indication: IMMUNODEFICIENCY COMMON VARIABLE
     Dosage: 9.2 G, 9.2 GRAMS PER WEEK SUBCUTANEOUS
     Route: 058
     Dates: start: 20091003
  5. NASACORT (1:1 MIX WITH ASTEPRO) (TRIAMCINOLONE ACETONIDE) [Concomitant]
  6. CELEXA [Concomitant]
  7. VERAPAMIL [Concomitant]
  8. WELCHOL [Concomitant]
  9. IMODIUM [Concomitant]

REACTIONS (1)
  - HEPATITIS B ANTIBODY POSITIVE [None]
